FAERS Safety Report 5778924-2 (Version None)
Quarter: 2008Q2

REPORT INFORMATION
  Report Type: 
  Country: None (occurrence: None)
  Receive Date: 20080611
  Receipt Date: 20070723
  Transmission Date: 20081010
  Serious: Yes (Disabling)
  Sender: FDA-Public Use
  Company Number: WAES 0707USA03830

PATIENT
  Age: 71 Year
  Sex: Male

DRUGS (3)
  1. COSOPT 2.0/0. [Suspect]
     Indication: GLAUCOMA
     Dosage: 2 DRPS/BID/OPHT
     Route: 047
     Dates: start: 20070523
  2. LUMIGAN [Concomitant]
  3. PRAVASTATIN SODIUM [Concomitant]

REACTIONS (1)
  - DEPRESSION [None]
